FAERS Safety Report 7483420-0 (Version None)
Quarter: 2011Q2

REPORT INFORMATION
  Report Type: 
  Country: None (occurrence: None)
  Receive Date: 20110512
  Receipt Date: 20110512
  Transmission Date: 20111010
  Serious: Yes (Life-Threatening, Hospitalization)
  Sender: FDA-Public Use
  Company Number: None

PATIENT
  Age: 70 Year
  Sex: Male
  Weight: 91.6266 kg

DRUGS (1)
  1. MELOXICAM [Suspect]
     Indication: ARTHRITIS
     Dosage: 1 TAB BY MOUTH 1 TIME DAILY MOUTH
     Route: 048
     Dates: start: 20090430, end: 20090515

REACTIONS (2)
  - ULCER [None]
  - RECTAL HAEMORRHAGE [None]
